FAERS Safety Report 14958627 (Version 2)
Quarter: 2018Q2

REPORT INFORMATION
  Report Type: Spontaneous
  Country: US (occurrence: US)
  Receive Date: 20180531
  Receipt Date: 20180604
  Transmission Date: 20180711
  Serious: Yes (Hospitalization)
  Sender: FDA-Public Use
  Company Number: US-FRESENIUS KABI-FK201806271

PATIENT
  Age: 52 Year
  Sex: Female

DRUGS (2)
  1. LINEZOLID (MANUFACTURER UNKNOWN) [Suspect]
     Active Substance: LINEZOLID
     Indication: PRODUCT USED FOR UNKNOWN INDICATION
     Route: 065
  2. ERTAPENEM. [Suspect]
     Active Substance: ERTAPENEM SODIUM
     Indication: PRODUCT USED FOR UNKNOWN INDICATION

REACTIONS (9)
  - Hypoglycaemia [Unknown]
  - Lactic acidosis [Unknown]
  - Hypotension [Unknown]
  - Mitochondrial toxicity [Unknown]
  - Mental status changes [Unknown]
  - Pancreatitis acute [Unknown]
  - Asthenia [Unknown]
  - Abdominal pain [Unknown]
  - Tachycardia [Unknown]
